FAERS Safety Report 22122068 (Version 1)
Quarter: 2023Q1

REPORT INFORMATION
  Report Type: Spontaneous
  Country: BE (occurrence: BE)
  Receive Date: 20230321
  Receipt Date: 20230321
  Transmission Date: 20230417
  Serious: Yes (Disabling, Other)
  Sender: FDA-Public Use
  Company Number: BE-JUVISE-2023000087

PATIENT
  Sex: Female

DRUGS (1)
  1. BISMUTH SUBCITRATE POTASSIUM\METRONIDAZOLE\TETRACYCLINE HYDROCHLORIDE [Suspect]
     Active Substance: BISMUTH SUBCITRATE POTASSIUM\METRONIDAZOLE\TETRACYCLINE HYDROCHLORIDE
     Indication: Helicobacter infection
     Dosage: 3DOSAGE FORMS 4X/DAY
     Route: 048
     Dates: start: 20230218, end: 20230227

REACTIONS (10)
  - Malaise [Recovering/Resolving]
  - Hallucination, auditory [Recovering/Resolving]
  - Muscular weakness [Recovering/Resolving]
  - Muscular weakness [Recovering/Resolving]
  - Weight decreased [Recovering/Resolving]
  - Mental disorder [Recovering/Resolving]
  - Decreased appetite [Recovering/Resolving]
  - Tremor [Recovering/Resolving]
  - Vertigo [Recovering/Resolving]
  - Anxiety [Recovering/Resolving]
